FAERS Safety Report 5207631-X (Version None)
Quarter: 2007Q1

REPORT INFORMATION
  Report Type: 
  Country: None (occurrence: None)
  Receive Date: 20070112
  Receipt Date: 20070102
  Transmission Date: 20070707
  Serious: Yes (Other)
  Sender: FDA-Public Use
  Company Number: US-PFIZER INC-2006117208

PATIENT
  Sex: Female

DRUGS (7)
  1. NEURONTIN [Suspect]
     Indication: BACK PAIN
  2. LIPITOR [Suspect]
  3. HYDROCHLOROTHIAZIDE [Suspect]
  4. RANITIDINE [Suspect]
  5. CARISOPRODOL [Concomitant]
  6. CELEBREX [Concomitant]
  7. HYDROCODONE [Concomitant]

REACTIONS (4)
  - DRUG INEFFECTIVE [None]
  - INTENTIONAL OVERDOSE [None]
  - SELF INJURIOUS BEHAVIOUR [None]
  - SUICIDE ATTEMPT [None]
